FAERS Safety Report 24617750 (Version 2)
Quarter: 2025Q1

REPORT INFORMATION
  Report Type: Spontaneous
  Country: US (occurrence: US)
  Receive Date: 20241114
  Receipt Date: 20250121
  Transmission Date: 20250409
  Serious: Yes (Other)
  Sender: SANOFI AVENTIS
  Company Number: US-SA-2024SA327757

PATIENT
  Age: 79 Year
  Sex: Female

DRUGS (2)
  1. DUPIXENT [Suspect]
     Active Substance: DUPILUMAB
     Indication: Asthma
     Dosage: 300 MG, QOW
     Route: 058
  2. HEPARIN [Concomitant]
     Active Substance: HEPARIN SODIUM

REACTIONS (9)
  - Thrombosis [Unknown]
  - Cerebrovascular accident [Unknown]
  - Colon cancer [Unknown]
  - Cardiac assistance device user [Unknown]
  - Diabetic retinopathy [Unknown]
  - Loss of personal independence in daily activities [Unknown]
  - Cardiac pacemaker insertion [Unknown]
  - Injection site erythema [Unknown]
  - Injection site pain [Unknown]
